FAERS Safety Report 7580619 (Version 7)
Quarter: 2012Q4

REPORT INFORMATION
  Report Type: Report from Study
  Country: IL (occurrence: IL)
  Receive Date: 20100910
  Receipt Date: 20121226
  Transmission Date: 20130627
  Serious: Yes (Other)
  Sender: FDA-Public Use
  Company Number: PHHO2010IL13469

PATIENT
  Age: 14 Year
  Sex: Male
  Weight: 65 kg

DRUGS (2)
  1. ACZ885 [Suspect]
     Indication: JUVENILE ARTHRITIS
     Dosage: Code not broken
     Route: 058
     Dates: start: 20100810
  2. AMOXICILLIN [Suspect]

REACTIONS (17)
  - Histiocytosis haematophagic [Unknown]
  - Hepatitis [Recovered/Resolved]
  - Hepatic necrosis [Recovering/Resolving]
  - Hepatomegaly [Recovering/Resolving]
  - Blood fibrinogen decreased [Recovering/Resolving]
  - Thrombocytopenia [Recovering/Resolving]
  - Pyrexia [Not Recovered/Not Resolved]
  - Splenomegaly [Recovering/Resolving]
  - Rash maculo-papular [Unknown]
  - Pruritus [Unknown]
  - Bronchopneumonia [Recovered/Resolved]
  - Cough [Not Recovered/Not Resolved]
  - Neutropenia [Unknown]
  - Leukopenia [Unknown]
  - Upper respiratory tract infection [Recovered/Resolved]
  - Rhinorrhoea [Recovered/Resolved]
  - Oropharyngeal pain [Recovered/Resolved]
